FAERS Safety Report 8712122 (Version 10)
Quarter: 2013Q1

REPORT INFORMATION
  Report Type: Report from Study
  Country: CA (occurrence: CA)
  Receive Date: 20120807
  Receipt Date: 20130325
  Transmission Date: 20140127
  Serious: Yes (Death, Hospitalization, Other)
  Sender: FDA-Public Use
  Company Number: CA-ROCHE-782577

PATIENT
  Age: 76 Year
  Sex: Male
  Weight: 100 kg

DRUGS (22)
  1. ACTEMRA [Suspect]
     Indication: RHEUMATOID ARTHRITIS
     Dosage: LAST INFUSION: 28/JUN/2012
     Route: 042
  2. ACTEMRA [Suspect]
     Route: 042
     Dates: start: 20110704, end: 20121214
  3. SPIRONOLACTONE [Concomitant]
  4. DIGOXIN [Concomitant]
  5. FUROSEMIDE [Concomitant]
  6. BISOPROLOL [Concomitant]
  7. ASA [Concomitant]
  8. LIPITOR [Concomitant]
  9. ALENDRONATE SODIUM [Concomitant]
     Dosage: DRUG NAME:ALENDRONATE
     Route: 065
  10. SELENIUM [Concomitant]
     Dosage: DRUG NAME:VIT E
     Route: 065
  11. FOLIC ACID [Concomitant]
  12. VITAMIN E [Concomitant]
     Dosage: DRUG NAME:VIT E
     Route: 065
  13. RAMIPRIL [Concomitant]
  14. INSULIN [Concomitant]
     Dosage: 28 UNITS
     Route: 065
  15. RABEPRAZOLE [Concomitant]
  16. PREDNISONE [Concomitant]
     Dosage: UPTO 10 MG
     Route: 048
  17. CITALOPRAM [Concomitant]
  18. GLICLAZIDE [Concomitant]
     Indication: DIABETES MELLITUS
  19. FOSAVANCE [Concomitant]
  20. LASIX [Concomitant]
  21. PARIET [Concomitant]
  22. LANTUS SOLOSTAR [Concomitant]

REACTIONS (20)
  - Lower respiratory tract infection [Fatal]
  - Pneumonia [Not Recovered/Not Resolved]
  - Deep vein thrombosis [Recovering/Resolving]
  - Local swelling [Unknown]
  - Pleural effusion [Recovering/Resolving]
  - Dyspnoea [Unknown]
  - Thrombosis [Recovered/Resolved]
  - Colitis [Unknown]
  - Pyrexia [Recovering/Resolving]
  - Cardiac operation [Recovered/Resolved]
  - Fall [Unknown]
  - Rheumatoid arthritis [Unknown]
  - Nasopharyngitis [Unknown]
  - Rash [Not Recovered/Not Resolved]
  - Cardiac disorder [Unknown]
  - Cough [Recovering/Resolving]
  - Red blood cell sedimentation rate increased [Not Recovered/Not Resolved]
  - Muscle strain [Not Recovered/Not Resolved]
  - Cellulitis [Unknown]
  - Arthralgia [Not Recovered/Not Resolved]
